FAERS Safety Report 21815472 (Version 2)
Quarter: 2023Q1

REPORT INFORMATION
  Report Type: Report from Study
  Country: MA (occurrence: MA)
  Receive Date: 20230104
  Receipt Date: 20230118
  Transmission Date: 20230418
  Serious: Yes (Other)
  Sender: FDA-Public Use
  Company Number: MA-002147023-NVSC2022MA301574

PATIENT
  Sex: Female

DRUGS (4)
  1. COSENTYX [Suspect]
     Active Substance: SECUKINUMAB
     Indication: Psoriatic arthropathy
     Dosage: 150 MG, QMO
     Route: 058
     Dates: start: 20210120
  2. SALAZOPYRINE [Concomitant]
     Active Substance: SULFASALAZINE
     Indication: Product used for unknown indication
     Dosage: UNK
     Route: 065
  3. CORTIC [Concomitant]
     Indication: Dermatitis allergic
     Dosage: UNK
     Route: 065
  4. TOTIFEN [Concomitant]
     Indication: Dermatitis allergic
     Dosage: UNK
     Route: 065

REACTIONS (2)
  - Renal function test abnormal [Unknown]
  - Inflammation [Unknown]
